FAERS Safety Report 20154897 (Version 1)
Quarter: 2021Q4

REPORT INFORMATION
  Report Type: Spontaneous
  Country: FR (occurrence: FR)
  Receive Date: 20211207
  Receipt Date: 20211207
  Transmission Date: 20220303
  Serious: Yes (Hospitalization)
  Sender: FDA-Public Use
  Company Number: None

PATIENT
  Age: 39 Year
  Sex: Female

DRUGS (1)
  1. HULIO [Suspect]
     Active Substance: ADALIMUMAB-FKJP
     Indication: Spondylitis
     Dosage: 40 MILLIGRAM, TOTAL
     Route: 058
     Dates: start: 20200223, end: 20200223

REACTIONS (1)
  - Papilloedema [Recovered/Resolved]

NARRATIVE: CASE EVENT DATE: 20200311
